FAERS Safety Report 11763304 (Version 1)
Quarter: 2015Q4

REPORT INFORMATION
  Report Type: Spontaneous
  Country: US (occurrence: US)
  Receive Date: 20151120
  Receipt Date: 20151120
  Transmission Date: 20160304
  Serious: No
  Sender: FDA-Public Use
  Company Number: US-ELI_LILLY_AND_COMPANY-US201303004459

PATIENT
  Sex: Male

DRUGS (8)
  1. LAMOTRIGINE. [Concomitant]
     Active Substance: LAMOTRIGINE
     Dosage: 1 DF, QD
  2. VITAMIN C [Concomitant]
     Active Substance: ASCORBIC ACID
  3. CALCIUM [Concomitant]
     Active Substance: CALCIUM
  4. LEVOTHYROXINE. [Concomitant]
     Active Substance: LEVOTHYROXINE
     Dosage: 1 DF, QD
  5. FINASTERIDE. [Concomitant]
     Active Substance: FINASTERIDE
     Dosage: 1 DF, QD
  6. VITAMIN D [Concomitant]
     Active Substance: CHOLECALCIFEROL
  7. FORTEO [Suspect]
     Active Substance: TERIPARATIDE
     Indication: FRACTURED SACRUM
     Dosage: UNK, QD
     Dates: start: 2012
  8. GUAIFENESIN. [Concomitant]
     Active Substance: GUAIFENESIN

REACTIONS (4)
  - Rash [Unknown]
  - Off label use [Unknown]
  - Pain [Unknown]
  - Fibromyalgia [Unknown]
